FAERS Safety Report 6458945-7 (Version None)
Quarter: 2009Q4

REPORT INFORMATION
  Report Type: 
  Country: None (occurrence: None)
  Receive Date: 20091125
  Receipt Date: 20091125
  Transmission Date: 20100525
  Serious: Yes (Other)
  Sender: FDA-Public Use
  Company Number: None

PATIENT
  Age: 35 Year
  Sex: Male
  Weight: 85.2762 kg

DRUGS (1)
  1. ZONEGRAN [Suspect]
     Indication: EPILEPSY
     Dosage: 100MG 2AM - 2 NOON 2PM
     Dates: start: 20070401, end: 20080501

REACTIONS (5)
  - ABNORMAL BEHAVIOUR [None]
  - AGGRESSION [None]
  - AMNESIA [None]
  - MOOD SWINGS [None]
  - OBSESSIVE THOUGHTS [None]
